FAERS Safety Report 9324933 (Version 5)
Quarter: 2013Q4

REPORT INFORMATION
  Report Type: Spontaneous
  Country: GB (occurrence: GB)
  Receive Date: 20130603
  Receipt Date: 20131203
  Transmission Date: 20140711
  Serious: Yes (Hospitalization)
  Sender: FDA-Public Use
  Company Number: GB-PFIZER INC-2013166626

PATIENT
  Sex: Female

DRUGS (1)
  1. RAMIPRIL [Suspect]
     Dosage: UNK

REACTIONS (1)
  - Gastrointestinal disorder [Unknown]
